FAERS Safety Report 9358496 (Version 1)
Quarter: 2013Q2

REPORT INFORMATION
  Report Type: Spontaneous
  Country: US (occurrence: None)
  Receive Date: 20130619
  Receipt Date: 20130619
  Transmission Date: 20140414
  Serious: Yes (Life-Threatening, Hospitalization)
  Sender: FDA-Public Use
  Company Number: None

PATIENT
  Age: 52 Year
  Sex: Female
  Weight: 83 kg

DRUGS (1)
  1. MULTIHANCE [Suspect]
     Indication: NUCLEAR MAGNETIC RESONANCE IMAGING
     Route: 042
     Dates: start: 20130610

REACTIONS (8)
  - Agitation [None]
  - Emotional distress [None]
  - Dyspnoea [None]
  - Oxygen saturation decreased [None]
  - Swelling [None]
  - Face oedema [None]
  - Swollen tongue [None]
  - No reaction on previous exposure to drug [None]
